FAERS Safety Report 24459362 (Version 1)
Quarter: 2024Q4

REPORT INFORMATION
  Report Type: Report from Study
  Country: US (occurrence: US)
  Receive Date: 20241018
  Receipt Date: 20241018
  Transmission Date: 20250114
  Serious: No
  Sender: ROCHE
  Company Number: US-ROCHE-3536013

PATIENT
  Age: 61 Year
  Sex: Male
  Weight: 75.75 kg

DRUGS (15)
  1. RITUXAN [Suspect]
     Active Substance: RITUXIMAB
     Indication: Follicular lymphoma
     Dosage: 10 MG/ML, DATE OF TREATMENT: 05/MAR/2024
     Route: 042
  2. RITUXAN [Suspect]
     Active Substance: RITUXIMAB
     Dosage: 10 MG/ML
     Route: 042
  3. RITUXAN [Suspect]
     Active Substance: RITUXIMAB
     Route: 042
  4. ATORVASTATIN [Concomitant]
     Active Substance: ATORVASTATIN
  5. METOPROLOL [Concomitant]
     Active Substance: METOPROLOL
  6. DOXYCYCLINE [Concomitant]
     Active Substance: DOXYCYCLINE
  7. ASPIRIN [Concomitant]
     Active Substance: ASPIRIN
  8. IBUPROFEN [Concomitant]
     Active Substance: IBUPROFEN
  9. TAMSULOSIN [Concomitant]
     Active Substance: TAMSULOSIN
  10. DILTIAZEM [Concomitant]
     Active Substance: DILTIAZEM
  11. MEGESTROL [Concomitant]
     Active Substance: MEGESTROL
  12. PROMETHAZINE [Concomitant]
     Active Substance: PROMETHAZINE HYDROCHLORIDE
  13. ONDANSETRON [Concomitant]
     Active Substance: ONDANSETRON
  14. ALLOPURINOL [Concomitant]
     Active Substance: ALLOPURINOL
  15. DIPHENHYDRAMINE [Concomitant]
     Active Substance: DIPHENHYDRAMINE

REACTIONS (3)
  - Pain in extremity [Unknown]
  - Erectile dysfunction [Unknown]
  - Leukocytosis [Recovered/Resolved]
